FAERS Safety Report 7003029-2 (Version None)
Quarter: 2010Q3

REPORT INFORMATION
  Report Type: 
  Country: None (occurrence: None)
  Receive Date: 20100920
  Receipt Date: 20080331
  Transmission Date: 20110219
  Serious: No
  Sender: FDA-Public Use
  Company Number: US-ASTRAZENECA-2007UW27683

PATIENT
  Age: 41 Year
  Sex: Female

DRUGS (12)
  1. SEROQUEL [Suspect]
     Indication: ANXIETY
     Route: 048
     Dates: start: 19971201, end: 20060901
  2. SEROQUEL [Suspect]
     Indication: DEPRESSION
     Route: 048
     Dates: start: 19971201, end: 20060901
  3. SEROQUEL [Suspect]
     Indication: SCHIZOPHRENIA
     Route: 048
     Dates: start: 19971201, end: 20060901
  4. SEROQUEL [Suspect]
     Indication: AFFECTIVE DISORDER
     Route: 048
     Dates: start: 19971201, end: 20060901
  5. SEROQUEL [Suspect]
     Indication: SLEEP DISORDER
     Route: 048
     Dates: start: 19971201, end: 20060901
  6. SEROQUEL [Suspect]
     Route: 048
     Dates: start: 20060714, end: 20060901
  7. SEROQUEL [Suspect]
     Route: 048
     Dates: start: 20060714, end: 20060901
  8. SEROQUEL [Suspect]
     Route: 048
     Dates: start: 20060714, end: 20060901
  9. SEROQUEL [Suspect]
     Route: 048
     Dates: start: 20060714, end: 20060901
  10. SEROQUEL [Suspect]
     Route: 048
     Dates: start: 20060714, end: 20060901
  11. TYLENOL [Concomitant]
     Dosage: 3 BID/ PRN
     Dates: start: 20060314
  12. CLONIDINE [Concomitant]
     Dates: start: 20060314

REACTIONS (4)
  - DIABETES MELLITUS [None]
  - SEDATION [None]
  - TYPE 2 DIABETES MELLITUS [None]
  - WEIGHT ABNORMAL [None]
